FAERS Safety Report 15615681 (Version 2)
Quarter: 2018Q4

REPORT INFORMATION
  Report Type: Spontaneous
  Country: US (occurrence: US)
  Receive Date: 20181114
  Receipt Date: 20181217
  Transmission Date: 20190205
  Serious: Yes (Other)
  Sender: FDA-Public Use
  Company Number: US-LEXICON PHARMACEUTICALS, INC-18-1606-01440

PATIENT
  Age: 72 Year
  Sex: Male

DRUGS (3)
  1. TELOTRISTAT ETHYL [Suspect]
     Active Substance: TELOTRISTAT ETHYL
     Indication: PANCREATIC NEUROENDOCRINE TUMOUR
     Route: 048
     Dates: start: 20180517, end: 201810
  2. OCTREOTIDE. [Concomitant]
     Active Substance: OCTREOTIDE
     Route: 030
     Dates: start: 20170724
  3. TELOTRISTAT ETHYL [Suspect]
     Active Substance: TELOTRISTAT ETHYL
     Route: 048
     Dates: start: 2018

REACTIONS (2)
  - Hepatobiliary disease [Unknown]
  - Jaundice [Unknown]

NARRATIVE: CASE EVENT DATE: 20181004
